FAERS Safety Report 6960689-X (Version None)
Quarter: 2010Q3

REPORT INFORMATION
  Report Type: 
  Country: None (occurrence: None)
  Receive Date: 20100830
  Receipt Date: 20100817
  Transmission Date: 20110219
  Serious: Yes (Hospitalization)
  Sender: FDA-Public Use
  Company Number: A-NJ2010-38530

PATIENT
  Age: 61 Year
  Sex: Female
  Weight: 117.6 kg

DRUGS (14)
  1. TRACLEER [Suspect]
     Indication: PULMONARY ARTERIAL HYPERTENSION
     Dosage: 62.5 MG, BID, ORAL, 125 MG, BID, ORAL
     Route: 048
     Dates: start: 20100701, end: 20100727
  2. TRACLEER [Suspect]
     Indication: PULMONARY ARTERIAL HYPERTENSION
     Dosage: 62.5 MG, BID, ORAL, 125 MG, BID, ORAL
     Route: 048
     Dates: start: 20100728
  3. COUMADIN [Concomitant]
  4. LEVOTHYROXINE SODIUM [Concomitant]
  5. CADUET [Concomitant]
  6. ATACAND HCT (CANDESARTAN CILEXETIL, HYDROCHLOROTHIAZIDE) [Concomitant]
  7. METOPROLOL SUCCINATE [Concomitant]
  8. PREVACID [Concomitant]
  9. ASPIRIN [Concomitant]
  10. NOVOLOG [Concomitant]
  11. SOTALOL HCL [Concomitant]
  12. OXYGEN (OXYGEN) [Concomitant]
  13. LANTUS [Concomitant]
  14. FUROSEMIDE [Concomitant]

REACTIONS (6)
  - BRADYCARDIA [None]
  - CARDIAC FAILURE CONGESTIVE [None]
  - COR PULMONALE [None]
  - FLUID RETENTION [None]
  - PLEURAL EFFUSION [None]
  - PULMONARY MASS [None]
